FAERS Safety Report 15294297 (Version 3)
Quarter: 2018Q4

REPORT INFORMATION
  Report Type: Report from Study
  Country: US (occurrence: US)
  Receive Date: 20180820
  Receipt Date: 20181008
  Transmission Date: 20190204
  Serious: Yes (Other)
  Sender: FDA-Public Use
  Company Number: US-AMGEN-USASL2018113003

PATIENT
  Age: 60 Year
  Sex: Female

DRUGS (4)
  1. HUMIRA [Suspect]
     Active Substance: ADALIMUMAB
     Indication: RHEUMATOID ARTHRITIS
     Dosage: UNK
     Route: 065
  2. ENBREL [Suspect]
     Active Substance: ETANERCEPT
     Indication: RHEUMATOID ARTHRITIS
     Dosage: UNK
     Route: 065
     Dates: start: 2017
  3. ENBREL [Suspect]
     Active Substance: ETANERCEPT
     Dosage: 25 MG, 2 TIMES/WK
     Route: 065
     Dates: start: 2018, end: 2018
  4. ENBREL [Suspect]
     Active Substance: ETANERCEPT
     Dosage: 50 MG, QWK
     Route: 065
     Dates: start: 2018, end: 2018

REACTIONS (10)
  - Tooth fracture [Unknown]
  - Wrong technique in product usage process [Unknown]
  - Drug effect decreased [Unknown]
  - Dry mouth [Unknown]
  - Macule [Not Recovered/Not Resolved]
  - Dental caries [Unknown]
  - Tooth abscess [Not Recovered/Not Resolved]
  - Rash papular [Not Recovered/Not Resolved]
  - Skin discolouration [Unknown]
  - Rash [Unknown]

NARRATIVE: CASE EVENT DATE: 2017
